FAERS Safety Report 5591926-4 (Version None)
Quarter: 2008Q1

REPORT INFORMATION
  Report Type: 
  Country: None (occurrence: None)
  Receive Date: 20080115
  Receipt Date: 20080107
  Transmission Date: 20080703
  Serious: Yes (Hospitalization, Other)
  Sender: FDA-Public Use
  Company Number: US-ELI_LILLY_AND_COMPANY-US200710003177

PATIENT
  Sex: Female
  Weight: 49.887 kg

DRUGS (9)
  1. GEMZAR [Suspect]
     Indication: BREAST CANCER METASTATIC
     Dosage: 1 D/F, UNK
     Dates: start: 20070813, end: 20070101
  2. PROCRIT [Concomitant]
     Indication: ANAEMIA OF MALIGNANT DISEASE
     Dosage: 120000 IU, OTHER
     Route: 058
     Dates: start: 20070718, end: 20070807
  3. KYTRIL [Concomitant]
     Dosage: 1 MG, MONTHLY (1/M)
     Dates: start: 20070518
  4. KYTRIL [Concomitant]
     Dosage: UNK, AS NEEDED
  5. ALOXI [Concomitant]
     Dates: start: 20070904
  6. ZYRTEC [Concomitant]
     Dosage: 10 MG, DAILY (1/D)
     Route: 048
     Dates: start: 20060531
  7. CENTRUM [Concomitant]
     Dosage: UNK, DAILY (1/D)
     Route: 048
     Dates: start: 20030917
  8. IBUPRIN [Concomitant]
     Dosage: UNK, DAILY (1/D)
     Route: 048
     Dates: start: 20070418
  9. CALCIUM CARBONATE [Concomitant]
     Dosage: 1200 MG, DAILY (1/D)
     Route: 048
     Dates: start: 20070706

REACTIONS (13)
  - ANAEMIA [None]
  - DEEP VEIN THROMBOSIS [None]
  - DEHYDRATION [None]
  - FUNGAL INFECTION [None]
  - HYPOKALAEMIA [None]
  - HYPOTENSION [None]
  - INTERVERTEBRAL DISC DEGENERATION [None]
  - LEUKOPENIA [None]
  - NAUSEA [None]
  - PATHOLOGICAL FRACTURE [None]
  - PYREXIA [None]
  - RASH [None]
  - VOMITING [None]
